FAERS Safety Report 6795317-X (Version None)
Quarter: 2010Q2

REPORT INFORMATION
  Report Type: 
  Country: None (occurrence: None)
  Receive Date: 20100625
  Receipt Date: 20100615
  Transmission Date: 20101027
  Serious: Yes (Other)
  Sender: FDA-Public Use
  Company Number: JP-PFIZER INC-2010074506

PATIENT
  Sex: Male

DRUGS (1)
  1. XALATAN [Suspect]
     Dosage: 1 GTT, 1X/DAY
     Route: 047

REACTIONS (2)
  - EYE IRRITATION [None]
  - HAEMOPTYSIS [None]
